FAERS Safety Report 7547060-7 (Version None)
Quarter: 2011Q2

REPORT INFORMATION
  Report Type: 
  Country: None (occurrence: None)
  Receive Date: 20110614
  Receipt Date: 20110607
  Transmission Date: 20111010
  Serious: Yes (Other)
  Sender: FDA-Public Use
  Company Number: TR-ROXANE LABORATORIES, INC.-2011-RO-00780RO

PATIENT
  Age: 14 Year
  Sex: Male

DRUGS (11)
  1. DEXAMETHASONE [Suspect]
     Indication: T-CELL TYPE ACUTE LEUKAEMIA
  2. LINEZOLID [Suspect]
     Indication: ANTI-INFECTIVE THERAPY
  3. VINCRISTINE [Suspect]
     Indication: T-CELL TYPE ACUTE LEUKAEMIA
  4. NETILMICIN [Suspect]
     Indication: ANTI-INFECTIVE THERAPY
  5. ASPARAGINASE [Suspect]
     Indication: T-CELL TYPE ACUTE LEUKAEMIA
  6. COTRIM [Suspect]
     Indication: ANTI-INFECTIVE THERAPY
  7. CYTARABINE [Suspect]
     Indication: T-CELL TYPE ACUTE LEUKAEMIA
  8. CASPOFUNGIN ACETATE [Suspect]
     Indication: ANTI-INFECTIVE THERAPY
  9. METHOTREXATE [Suspect]
     Indication: T-CELL TYPE ACUTE LEUKAEMIA
  10. CYCLOPHOSPHAMIDE [Suspect]
     Indication: T-CELL TYPE ACUTE LEUKAEMIA
  11. ALLOPURINOL [Suspect]
     Indication: T-CELL TYPE ACUTE LEUKAEMIA

REACTIONS (2)
  - MANIA [None]
  - AFFECTIVE DISORDER [None]
